FAERS Safety Report 9118736 (Version 1)
Quarter: 2013Q1

REPORT INFORMATION
  Report Type: Spontaneous
  Country: ES (occurrence: None)
  Receive Date: 20130128
  Receipt Date: 20130128
  Transmission Date: 20140127
  Serious: Yes (Other)
  Sender: FDA-Public Use
  Company Number: 2013VX000262

PATIENT
  Age: 29 Year
  Sex: Female
  Weight: 52 kg

DRUGS (2)
  1. TIMOLOL MALEATE (TIMOLOL MALEATE) [Suspect]
     Indication: DEVELOPMENTAL GLAUCOMA
     Route: 047
  2. DORZOLAMIDE [Suspect]
     Indication: BLOOD GLUCOSE
     Dosage: ; UNK; OPH?--/--/2006  -  09/--/2009
     Route: 047
     Dates: start: 2006, end: 200909

REACTIONS (5)
  - Exposure during pregnancy [None]
  - Induced labour [None]
  - Caesarean section [None]
  - Foetal growth restriction [None]
  - Complication of delivery [None]
